FAERS Safety Report 9698251 (Version 1)
Quarter: 2013Q4

REPORT INFORMATION
  Report Type: Spontaneous
  Country: US (occurrence: US)
  Receive Date: 20131120
  Receipt Date: 20131120
  Transmission Date: 20140711
  Serious: No
  Sender: FDA-Public Use
  Company Number: US-ENDO PHARMACEUTICALS INC.-OXYB20120007

PATIENT
  Sex: Female

DRUGS (2)
  1. OXYBUTYNIN CHLORIDE TABLETS [Suspect]
     Indication: PRODUCT USED FOR UNKNOWN INDICATION
     Dosage: 5 MG
     Route: 048
     Dates: start: 201202, end: 2012
  2. OXYBUTYNIN CHLORIDE TABLETS [Suspect]
     Dosage: 2.5 MG
     Route: 048
     Dates: start: 2012, end: 20120413

REACTIONS (3)
  - Hypersensitivity [Unknown]
  - Dehydration [Unknown]
  - Vision blurred [Unknown]
